FAERS Safety Report 8383386-5 (Version None)
Quarter: 2012Q2

REPORT INFORMATION
  Report Type: 
  Country: None (occurrence: None)
  Receive Date: 20120524
  Receipt Date: 20120517
  Transmission Date: 20120825
  Serious: Yes (Hospitalization)
  Sender: FDA-Public Use
  Company Number: MX-GENZYME-CERZ-1002511

PATIENT
  Sex: Female

DRUGS (2)
  1. CEREZYME [Suspect]
     Indication: GAUCHER'S DISEASE
     Dosage: 120 U ( 4 VIALS ) , Q2W
     Route: 042
     Dates: start: 20080101
  2. MIGLUSTAT [Concomitant]
     Indication: PRODUCT USED FOR UNKNOWN INDICATION
     Dosage: UNK
     Route: 048

REACTIONS (4)
  - HYPOTHERMIA [None]
  - VOMITING [None]
  - HYPOGLYCAEMIA [None]
  - HEADACHE [None]
